FAERS Safety Report 11439042 (Version 1)
Quarter: 2015Q3

REPORT INFORMATION
  Report Type: Spontaneous
  Country: US (occurrence: US)
  Receive Date: 20150901
  Receipt Date: 20150901
  Transmission Date: 20151125
  Serious: No
  Sender: FDA-Public Use
  Company Number: US-ROCHE-1118739

PATIENT
  Sex: Female

DRUGS (1)
  1. PEGASYS [Suspect]
     Active Substance: PEGINTERFERON ALFA-2A
     Indication: PRODUCT USED FOR UNKNOWN INDICATION
     Route: 065

REACTIONS (8)
  - Nasopharyngitis [Unknown]
  - Bone pain [Unknown]
  - Nausea [Unknown]
  - Rash [Unknown]
  - Pyrexia [Unknown]
  - Unevaluable event [Unknown]
  - Headache [Unknown]
  - Abdominal pain upper [Unknown]
